FAERS Safety Report 5060949-6 (Version None)
Quarter: 2006Q3

REPORT INFORMATION
  Report Type: 
  Country: None (occurrence: None)
  Receive Date: 20060721
  Receipt Date: 20060705
  Transmission Date: 20061208
  Serious: Yes (Hospitalization)
  Sender: FDA-Public Use
  Company Number: 2006BI009675

PATIENT
  Sex: Female

DRUGS (2)
  1. NATALIZUMAB [Suspect]
     Indication: MULTIPLE SCLEROSIS
     Dosage: IV
     Route: 042
  2. STEROIDS [Concomitant]

REACTIONS (4)
  - BLINDNESS [None]
  - DEPRESSION [None]
  - HYPOAESTHESIA [None]
  - SPINAL OPERATION [None]
